FAERS Safety Report 14264366 (Version 1)
Quarter: 2017Q4

REPORT INFORMATION
  Report Type: Spontaneous
  Country: US (occurrence: US)
  Receive Date: 20171208
  Receipt Date: 20171208
  Transmission Date: 20180321
  Serious: No
  Sender: FDA-Public Use
  Company Number: US-JAZZ-2017-US-011583

PATIENT
  Sex: Female

DRUGS (22)
  1. SYNTHROID [Concomitant]
     Active Substance: LEVOTHYROXINE SODIUM
  2. POTASSIUM CHLORIDE. [Concomitant]
     Active Substance: POTASSIUM CHLORIDE
  3. GABA [Concomitant]
     Active Substance: HOMEOPATHICS
  4. NEURONTIN [Concomitant]
     Active Substance: GABAPENTIN
  5. NUVIGIL [Concomitant]
     Active Substance: ARMODAFINIL
  6. VITAMIN B6 [Concomitant]
     Active Substance: PYRIDOXINE HYDROCHLORIDE
  7. MAXALT-MLT [Concomitant]
     Active Substance: RIZATRIPTAN BENZOATE
  8. TOPAMAX [Concomitant]
     Active Substance: TOPIRAMATE
  9. DOXYCYCLINE MONOHYDRATE [Concomitant]
     Active Substance: DOXYCYCLINE
  10. LATUDA [Concomitant]
     Active Substance: LURASIDONE HYDROCHLORIDE
  11. ABILIFY [Concomitant]
     Active Substance: ARIPIPRAZOLE
  12. COENZYME Q10 [Concomitant]
     Active Substance: UBIDECARENONE
  13. TEMAZEPAM. [Concomitant]
     Active Substance: TEMAZEPAM
  14. XYREM [Suspect]
     Active Substance: SODIUM OXYBATE
     Dosage: 4.25G, BID
     Route: 048
     Dates: start: 201706
  15. LAMOTRIGINE. [Concomitant]
     Active Substance: LAMOTRIGINE
  16. LAMICTAL [Concomitant]
     Active Substance: LAMOTRIGINE
  17. XYREM [Suspect]
     Active Substance: SODIUM OXYBATE
     Indication: NARCOLEPSY
     Dosage: 2.25G, BID
     Route: 048
     Dates: start: 201311, end: 201311
  18. XYREM [Suspect]
     Active Substance: SODIUM OXYBATE
     Dosage: DOSE ADJUSTMENT
     Route: 048
     Dates: start: 201311, end: 201706
  19. NIACIN. [Concomitant]
     Active Substance: NIACIN
  20. PREPOPIK [Concomitant]
     Active Substance: ANHYDROUS CITRIC ACID\MAGNESIUM OXIDE\SODIUM PICOSULFATE
  21. VITAMIN D3 [Concomitant]
     Active Substance: CHOLECALCIFEROL
  22. OSPHENA [Concomitant]
     Active Substance: OSPEMIFENE

REACTIONS (1)
  - Neuropathy peripheral [Unknown]
